FAERS Safety Report 8996707 (Version 1)
Quarter: 2013Q1

REPORT INFORMATION
  Report Type: Spontaneous
  Country: DE (occurrence: DE)
  Receive Date: 20130104
  Receipt Date: 20130104
  Transmission Date: 20140127
  Serious: Yes (Other)
  Sender: FDA-Public Use
  Company Number: DE-COVIDIEN/TYCO HEALTHCARE/MALLINCKRODT-T201204434

PATIENT
  Age: 35 Year
  Sex: Female
  Weight: 68 kg

DRUGS (6)
  1. EXALGO EXTENDED RELEASE [Suspect]
     Indication: PAIN
     Dosage: 8-4-8 (20 MG A DAY)
     Route: 048
  2. EXALGO EXTENDED RELEASE [Suspect]
     Dosage: UNK
  3. CLEXANE [Suspect]
     Indication: THROMBOSIS PROPHYLAXIS
     Dosage: 20 MG, IN 1 DAY
     Route: 058
     Dates: start: 20090708, end: 20100211
  4. PALLADONE [Suspect]
     Indication: PAIN
     Dosage: 6.96 MG, IN 1 DAY
     Route: 048
  5. MORPHINE SULFATE [Suspect]
     Indication: PAIN
     Dosage: UNK
     Route: 048
  6. LYRICA [Suspect]
     Indication: PAIN
     Dosage: UNK

REACTIONS (6)
  - Maternal exposure during pregnancy [Recovered/Resolved]
  - Premature labour [Recovered/Resolved]
  - Gestational diabetes [Unknown]
  - Off label use [Unknown]
  - Caesarean section [None]
  - Drug withdrawal syndrome neonatal [None]
